FAERS Safety Report 23868403 (Version 1)
Quarter: 2024Q2

REPORT INFORMATION
  Report Type: Spontaneous
  Country: US (occurrence: US)
  Receive Date: 20240517
  Receipt Date: 20240517
  Transmission Date: 20240716
  Serious: Yes (Other)
  Sender: FDA-Public Use
  Company Number: US-JNJFOC-20240528267

PATIENT
  Age: 3 Decade
  Sex: Male

DRUGS (3)
  1. REMICADE [Suspect]
     Active Substance: INFLIXIMAB
     Indication: Product used for unknown indication
     Route: 041
     Dates: start: 2006, end: 2017
  2. HUMIRA [Suspect]
     Active Substance: ADALIMUMAB
  3. PREDNISONE [Suspect]
     Active Substance: PREDNISONE

REACTIONS (8)
  - Fistula inflammation [Unknown]
  - Post procedural complication [Unknown]
  - Nausea [Unknown]
  - Vomiting [Unknown]
  - Diarrhoea [Unknown]
  - Incision site discharge [Unknown]
  - Obstruction [Unknown]
  - Abdominal pain [Unknown]

NARRATIVE: CASE EVENT DATE: 20060101
